FAERS Safety Report 4885793-1 (Version None)
Quarter: 2006Q1

REPORT INFORMATION
  Report Type: 
  Country: None (occurrence: None)
  Receive Date: 20060117
  Receipt Date: 20060105
  Transmission Date: 20060701
  Serious: Yes (Disabling)
  Sender: FDA-Public Use
  Company Number: 144177USA

PATIENT
  Age: 27 Year
  Sex: Female

DRUGS (9)
  1. PIMOZIDE [Suspect]
  2. ZOTEPINE [Concomitant]
  3. PIPAMPERONE [Concomitant]
  4. TRIHEXIPHENYDIL [Concomitant]
  5. DANTROLENE [Concomitant]
  6. VALPROATE SODIUM [Concomitant]
  7. SEROQUEL [Concomitant]
  8. PAROXETINE HCL [Concomitant]
  9. PEROSPIRONE [Concomitant]

REACTIONS (2)
  - CONDITION AGGRAVATED [None]
  - DYSTONIA [None]
